FAERS Safety Report 4374363-X (Version None)
Quarter: 2004Q2

REPORT INFORMATION
  Report Type: 
  Country: None (occurrence: None)
  Receive Date: 20040608
  Receipt Date: 20040608
  Transmission Date: 20050107
  Serious: Yes (Hospitalization)
  Sender: FDA-Public Use
  Company Number: None

PATIENT
  Age: 75 Year
  Sex: Female
  Weight: 82 kg

DRUGS (1)
  1. COUMADIN [Suspect]
     Indication: ATRIAL FIBRILLATION
     Dosage: 2.5 MG DAILY ORAL
     Route: 048
     Dates: start: 20040402, end: 20040605

REACTIONS (2)
  - INTERNATIONAL NORMALISED RATIO INCREASED [None]
  - UPPER GASTROINTESTINAL HAEMORRHAGE [None]
